FAERS Safety Report 9806381 (Version 3)
Quarter: 2014Q1

REPORT INFORMATION
  Report Type: Spontaneous
  Country: JP (occurrence: JP)
  Receive Date: 20140109
  Receipt Date: 20140124
  Transmission Date: 20141002
  Serious: No
  Sender: FDA-Public Use
  Company Number: JP-OTSUKA-JP-2013-16212

PATIENT
  Age: 4 Year
  Sex: 0

DRUGS (6)
  1. BUSULFEX [Suspect]
     Indication: ACUTE LYMPHOCYTIC LEUKAEMIA
     Dosage: UNK UNKNOWN, UNKNOWN
     Route: 041
  2. BUSULFEX [Suspect]
     Indication: CHROMOSOME ANALYSIS ABNORMAL
  3. CYCLOPHOSPHAMIDE MONOHYDRATE [Concomitant]
     Indication: ACUTE LYMPHOCYTIC LEUKAEMIA
     Dosage: UNK
     Route: 065
  4. CYCLOPHOSPHAMIDE MONOHYDRATE [Concomitant]
     Indication: CHROMOSOME ANALYSIS ABNORMAL
  5. MELPHALAN [Concomitant]
     Indication: ACUTE LYMPHOCYTIC LEUKAEMIA
     Dosage: UNK
     Route: 065
  6. MELPHALAN [Concomitant]
     Indication: CHROMOSOME ANALYSIS ABNORMAL

REACTIONS (1)
  - No adverse event [Unknown]
